FAERS Safety Report 4275925-0 (Version None)
Quarter: 2004Q1

REPORT INFORMATION
  Report Type: 
  Country: None (occurrence: None)
  Receive Date: 20040121
  Receipt Date: 20030320
  Transmission Date: 20041129
  Serious: No
  Sender: FDA-Public Use
  Company Number: US-GLAXOSMITHKLINE-A0401250A

PATIENT
  Age: 54 Year
  Sex: Female
  Weight: 54.5 kg

DRUGS (3)
  1. VALTREX [Suspect]
     Dosage: 1G THREE TIMES PER DAY
     Route: 048
  2. SYNTHROID [Concomitant]
     Indication: THYROXINE DECREASED
     Route: 048
  3. LOMOTIL [Concomitant]
     Route: 048

REACTIONS (1)
  - HEPATIC ENZYME INCREASED [None]
